FAERS Safety Report 6309108-7 (Version None)
Quarter: 2009Q3

REPORT INFORMATION
  Report Type: 
  Country: None (occurrence: None)
  Receive Date: 20090812
  Receipt Date: 20090729
  Transmission Date: 20100115
  Serious: Yes (Hospitalization)
  Sender: FDA-Public Use
  Company Number: 1000007984

PATIENT
  Age: 30 Year
  Sex: Female

DRUGS (3)
  1. ESCITALOPRAM [Suspect]
     Indication: DEPRESSION
     Dosage: 0.3333 DOSAGE FORMS (1 DOSAGE FORMS,1 IN 3 D)
     Dates: start: 20050101, end: 20090703
  2. MINIDRIL (TABLETS) [Suspect]
     Indication: ORAL CONTRACEPTION
     Dosage: ORAL
     Route: 048
  3. PRAZEPAM [Suspect]
     Indication: ANXIETY
     Dosage: (AS REQUIRED)
     Dates: start: 20050101

REACTIONS (3)
  - INTRACRANIAL PRESSURE INCREASED [None]
  - MYODESOPSIA [None]
  - VISUAL ACUITY REDUCED [None]
